FAERS Safety Report 9809870 (Version 2)
Quarter: 2015Q4

REPORT INFORMATION
  Report Type: Spontaneous
  Country: US (occurrence: US)
  Receive Date: 20140110
  Receipt Date: 20151228
  Transmission Date: 20160305
  Serious: Yes (Other)
  Sender: FDA-Public Use
  Company Number: US-SANOFI-AVENTIS-2013SA067345

PATIENT
  Age: 87 Year
  Sex: Female

DRUGS (1)
  1. PLAVIX [Suspect]
     Active Substance: CLOPIDOGREL BISULFATE
     Indication: CEREBROVASCULAR ACCIDENT
     Route: 065
     Dates: start: 20100313, end: 20110905

REACTIONS (4)
  - Gastrointestinal haemorrhage [Unknown]
  - Rectal haemorrhage [Unknown]
  - Epistaxis [Unknown]
  - Mouth haemorrhage [Unknown]

NARRATIVE: CASE EVENT DATE: 20110905
